FAERS Safety Report 13958485 (Version 1)
Quarter: 2017Q3

REPORT INFORMATION
  Report Type: Spontaneous
  Country: US (occurrence: US)
  Receive Date: 20170911
  Receipt Date: 20170911
  Transmission Date: 20171128
  Serious: Yes (Other)
  Sender: FDA-Public Use
  Company Number: US-ROCHE-1083755

PATIENT
  Sex: Male

DRUGS (6)
  1. ZEVALIN [Concomitant]
     Active Substance: IBRITUMOMAB TIUXETAN
     Dosage: DRUG REPORED AS ZEVELIN
     Route: 065
     Dates: start: 2004
  2. CYCLOPHOSPHAMIDE [Concomitant]
  3. DOXORUBICIN [Concomitant]
     Active Substance: DOXORUBICIN
  4. VINCRISTINE [Concomitant]
     Active Substance: VINCRISTINE
  5. RITUXAN [Suspect]
     Active Substance: RITUXIMAB
     Indication: NON-HODGKIN^S LYMPHOMA
     Route: 065
     Dates: start: 2004
  6. PREDNISOLONE [Concomitant]

REACTIONS (5)
  - Chills [Unknown]
  - Non-Hodgkin^s lymphoma [Unknown]
  - Depression [Unknown]
  - Decreased activity [Unknown]
  - Fatigue [Unknown]
